FAERS Safety Report 10429583 (Version 1)
Quarter: 2014Q3

REPORT INFORMATION
  Report Type: Spontaneous
  Country: US (occurrence: None)
  Receive Date: 20140902
  Receipt Date: 20140902
  Transmission Date: 20150326
  Serious: Yes (Other)
  Sender: FDA-Public Use
  Company Number: None

PATIENT
  Age: 3 Month
  Sex: Female
  Weight: 6.35 kg

DRUGS (1)
  1. NYSTATIN. [Suspect]
     Active Substance: NYSTATIN
     Indication: FUNGAL INFECTION
     Route: 058
     Dates: start: 20140829, end: 20140901

REACTIONS (2)
  - Application site rash [None]
  - Exfoliative rash [None]

NARRATIVE: CASE EVENT DATE: 20140901
